FAERS Safety Report 12946135 (Version 5)
Quarter: 2017Q2

REPORT INFORMATION
  Report Type: Spontaneous
  Country: JP (occurrence: JP)
  Receive Date: 20161116
  Receipt Date: 20170403
  Transmission Date: 20170830
  Serious: Yes (Death)
  Sender: FDA-Public Use
  Company Number: JP-ABBVIE-16K-087-1761645-00

PATIENT
  Age: 84 Year
  Sex: Female

DRUGS (20)
  1. HUMIRA [Suspect]
     Active Substance: ADALIMUMAB
     Route: 058
     Dates: start: 20161003, end: 20161017
  2. PREDONINE [Suspect]
     Active Substance: PREDNISOLONE
     Route: 065
     Dates: start: 20160920, end: 20160925
  3. CEFAZOLIN SODIUM. [Concomitant]
     Active Substance: CEFAZOLIN SODIUM
     Indication: PROPHYLAXIS
  4. PREDONINE [Suspect]
     Active Substance: PREDNISOLONE
     Route: 065
     Dates: start: 20161011, end: 20161011
  5. ASACOL [Concomitant]
     Active Substance: MESALAMINE
     Indication: COLITIS ULCERATIVE
     Dates: start: 20161003, end: 20161021
  6. HUMIRA [Suspect]
     Active Substance: ADALIMUMAB
     Indication: COLITIS ULCERATIVE
     Dosage: FIRST DOSE
     Route: 058
     Dates: start: 20160905, end: 20160905
  7. PREDONINE [Suspect]
     Active Substance: PREDNISOLONE
     Route: 065
     Dates: start: 20160912, end: 20160919
  8. PREDONINE [Suspect]
     Active Substance: PREDNISOLONE
     Route: 065
     Dates: start: 20161012, end: 20161030
  9. PENTASA [Concomitant]
     Active Substance: MESALAMINE
     Indication: COLITIS ULCERATIVE
     Route: 048
     Dates: start: 20160823, end: 20161002
  10. PENTASA [Concomitant]
     Active Substance: MESALAMINE
     Dates: start: 20160904, end: 20160930
  11. PENTASA [Concomitant]
     Active Substance: MESALAMINE
     Dates: start: 20161001, end: 20161002
  12. CEFAZOLIN SODIUM. [Concomitant]
     Active Substance: CEFAZOLIN SODIUM
     Indication: PYREXIA
     Dates: start: 20161003
  13. PREDONINE [Suspect]
     Active Substance: PREDNISOLONE
     Indication: COLITIS ULCERATIVE
     Route: 065
     Dates: start: 20160903, end: 20160903
  14. PREDONINE [Suspect]
     Active Substance: PREDNISOLONE
     Indication: MEGACOLON
     Route: 065
     Dates: start: 20160904, end: 20160911
  15. PREDONINE [Suspect]
     Active Substance: PREDNISOLONE
     Route: 065
     Dates: start: 20160912, end: 20160919
  16. PREDNISOLONE. [Concomitant]
     Active Substance: PREDNISOLONE
     Indication: MEGACOLON
  17. PREDONINE [Suspect]
     Active Substance: PREDNISOLONE
     Route: 065
     Dates: start: 20160926, end: 20160930
  18. MINOCYCLINE HYDROCHLORIDE. [Concomitant]
     Active Substance: MINOCYCLINE HYDROCHLORIDE
     Indication: HYPERTHERMIA
     Dates: start: 20161008
  19. HUMIRA [Suspect]
     Active Substance: ADALIMUMAB
     Indication: MEGACOLON
     Dosage: SECOND DOSE
     Route: 058
     Dates: start: 20160920, end: 20160920
  20. PREDNISOLONE. [Concomitant]
     Active Substance: PREDNISOLONE
     Indication: COLITIS ULCERATIVE
     Dosage: DAILY DOSE 10 MILLIGRAM
     Dates: start: 20161001, end: 20161011

REACTIONS (2)
  - Pneumonia aspiration [Fatal]
  - Pseudomonas test positive [Unknown]

NARRATIVE: CASE EVENT DATE: 20161011
